FAERS Safety Report 26191348 (Version 1)
Quarter: 2025Q4

REPORT INFORMATION
  Report Type: Report from Study
  Country: CA (occurrence: CA)
  Receive Date: 20251223
  Receipt Date: 20251223
  Transmission Date: 20260118
  Serious: No
  Sender: BLUEPRINT MEDICINES
  Company Number: CA-Blueprint Medicines Corporation-2025-AER-02761

PATIENT
  Age: 76 Year
  Sex: Male

DRUGS (2)
  1. AVAPRITINIB [Suspect]
     Active Substance: AVAPRITINIB
     Indication: Advanced systemic mastocytosis
     Route: 048
     Dates: start: 20250409
  2. AVAPRITINIB [Suspect]
     Active Substance: AVAPRITINIB
     Route: 048
     Dates: start: 20251217

REACTIONS (1)
  - Off label use [Unknown]
